FAERS Safety Report 6229030-4 (Version None)
Quarter: 2009Q2

REPORT INFORMATION
  Report Type: 
  Country: None (occurrence: None)
  Receive Date: 20090615
  Receipt Date: 20090603
  Transmission Date: 20091009
  Serious: No
  Sender: FDA-Public Use
  Company Number: US-BIOGENIDEC-2009BI013138

PATIENT
  Sex: Male

DRUGS (8)
  1. AVONEX [Suspect]
     Indication: MULTIPLE SCLEROSIS
     Route: 030
     Dates: start: 19980101, end: 20030301
  2. AVONEX [Suspect]
     Route: 030
     Dates: start: 20030101, end: 20040101
  3. AVONEX [Suspect]
     Route: 030
     Dates: start: 20080301, end: 20090423
  4. TYLENOL (CAPLET) [Concomitant]
     Indication: HEADACHE
  5. TYLENOL (CAPLET) [Concomitant]
     Indication: FAECAL INCONTINENCE
  6. TYLENOL (CAPLET) [Concomitant]
     Indication: BACK PAIN
  7. TYLENOL (CAPLET) [Concomitant]
     Indication: PAIN IN EXTREMITY
  8. VICODIN [Concomitant]
     Indication: INTERVERTEBRAL DISC DISORDER

REACTIONS (4)
  - CHEST PAIN [None]
  - FAECAL INCONTINENCE [None]
  - INFLUENZA LIKE ILLNESS [None]
  - PAIN [None]
